FAERS Safety Report 9894650 (Version 2)
Quarter: 2014Q3

REPORT INFORMATION
  Report Type: Spontaneous
  Country: US (occurrence: US)
  Receive Date: 20140213
  Receipt Date: 20140711
  Transmission Date: 20150326
  Serious: Yes (Hospitalization, Other)
  Sender: FDA-Public Use
  Company Number: US-009507513-1402USA005970

PATIENT
  Sex: Female

DRUGS (1)
  1. NUVARING [Suspect]
     Active Substance: ETHINYL ESTRADIOL\ETONOGESTREL
     Indication: CONTRACEPTION
     Dosage: UNK
     Route: 067
     Dates: start: 20120424, end: 20120515

REACTIONS (10)
  - Deep vein thrombosis [Unknown]
  - Pleurisy [Unknown]
  - Electrocardiogram ST-T segment abnormal [Unknown]
  - Pulmonary embolism [Unknown]
  - Platelet count decreased [Unknown]
  - Deep vein thrombosis [Unknown]
  - Atelectasis [Unknown]
  - Hypotension [Unknown]
  - Pulmonary hypertension [Unknown]
  - Embolism venous [Unknown]

NARRATIVE: CASE EVENT DATE: 201205
